FAERS Safety Report 10068774 (Version 2)
Quarter: 2014Q2

REPORT INFORMATION
  Report Type: Spontaneous
  Country: US (occurrence: US)
  Receive Date: 20140409
  Receipt Date: 20140409
  Transmission Date: 20141212
  Serious: No
  Sender: FDA-Public Use
  Company Number: US-MYLANLABS-2014S1001746

PATIENT
  Age: 70 Year
  Sex: Female

DRUGS (3)
  1. VALSARTAN AND HYDROCHLOROTHIAZIDE TABLETS [Suspect]
     Indication: HYPERTENSION
     Dates: start: 201210, end: 201211
  2. CALCIUM WITH VITAMIN D [Concomitant]
  3. VITAMIN D [Concomitant]

REACTIONS (3)
  - Gastric disorder [Recovering/Resolving]
  - Haemorrhoids [Recovered/Resolved]
  - Anal fissure [Recovered/Resolved]
